FAERS Safety Report 6062226-3 (Version None)
Quarter: 2009Q1

REPORT INFORMATION
  Report Type: 
  Country: None (occurrence: None)
  Receive Date: 20090203
  Receipt Date: 20090122
  Transmission Date: 20090719
  Serious: Yes (Other)
  Sender: FDA-Public Use
  Company Number: US-BAYER-200911834NA

PATIENT
  Sex: Male

DRUGS (3)
  1. LEVITRA [Suspect]
     Indication: ERECTILE DYSFUNCTION
  2. VIAGRA [Suspect]
     Indication: ERECTILE DYSFUNCTION
  3. CIALIS [Suspect]
     Indication: ERECTILE DYSFUNCTION

REACTIONS (7)
  - CHROMATOPSIA [None]
  - HYPERSENSITIVITY [None]
  - LACRIMATION INCREASED [None]
  - NASAL CONGESTION [None]
  - NASAL DISCOMFORT [None]
  - NASAL OEDEMA [None]
  - RHINORRHOEA [None]
